FAERS Safety Report 9371612 (Version 1)
Quarter: 2013Q2

REPORT INFORMATION
  Report Type: Report from Study
  Country: FR (occurrence: FR)
  Receive Date: 20130627
  Receipt Date: 20130627
  Transmission Date: 20140414
  Serious: Yes (Hospitalization, Other)
  Sender: FDA-Public Use
  Company Number: PHHY2010FR40186

PATIENT
  Sex: 0

DRUGS (1)
  1. STI571 [Suspect]
     Indication: CHRONIC MYELOID LEUKAEMIA
     Dosage: 400 MG, DAILY
     Route: 048
     Dates: start: 20040202, end: 20100602

REACTIONS (10)
  - Neuropathy peripheral [Unknown]
  - Mononeuropathy multiplex [Unknown]
  - Sciatica [Not Recovered/Not Resolved]
  - Foot deformity [Unknown]
  - Back pain [Unknown]
  - Pain in extremity [Unknown]
  - Hypoaesthesia [Unknown]
  - Paraesthesia [Unknown]
  - Lumbar puncture [Unknown]
  - Nerve root injury lumbar [Unknown]
